FAERS Safety Report 5722479-5 (Version None)
Quarter: 2008Q2

REPORT INFORMATION
  Report Type: 
  Country: None (occurrence: None)
  Receive Date: 20080429
  Receipt Date: 20071004
  Transmission Date: 20081010
  Serious: No
  Sender: FDA-Public Use
  Company Number: US-ASTRAZENECA-2007UW23141

PATIENT
  Age: 56 Year
  Sex: Male
  Weight: 77.1 kg

DRUGS (2)
  1. NEXIUM [Suspect]
     Indication: GASTROOESOPHAGEAL REFLUX DISEASE
     Route: 048
     Dates: start: 20071003
  2. ANTACID TAB [Concomitant]

REACTIONS (2)
  - DRUG INEFFECTIVE [None]
  - SENSATION OF FOREIGN BODY [None]
